FAERS Safety Report 5389756-1 (Version None)
Quarter: 2007Q3

REPORT INFORMATION
  Report Type: 
  Country: None (occurrence: None)
  Receive Date: 20070717
  Receipt Date: 20070710
  Transmission Date: 20080115
  Serious: Yes (Death)
  Sender: FDA-Public Use
  Company Number: IR-ABBOTT-07P-080-0374509-00

PATIENT

DRUGS (9)
  1. CYCLOSPORINE [Suspect]
     Indication: IMMUNOSUPPRESSION
  2. AZATHIOPRINE [Suspect]
     Indication: IMMUNOSUPPRESSION
     Dosage: 2 TO 3 MG/KG/DAY
  3. METHYLPREDNISOLONE [Suspect]
     Indication: IMMUNOSUPPRESSION
  4. PREDNISOLONE [Suspect]
     Indication: IMMUNOSUPPRESSION
  5. PREDNISOLONE [Suspect]
  6. MYCOPHENOLATE MOFETIL [Suspect]
     Indication: IMMUNOSUPPRESSION
     Dosage: NOT REPORTED
  7. ANTITHYMOCYTE IMMUNOGLOBULIN [Concomitant]
     Indication: PROPHYLAXIS AGAINST TRANSPLANT REJECTION
     Dosage: NOT REPORTED
  8. ANTITHYMOCYTE IMMUNOGLOBULIN [Concomitant]
     Indication: KIDNEY TRANSPLANT REJECTION
  9. METHYLPREDNISOLONE [Concomitant]
     Indication: KIDNEY TRANSPLANT REJECTION

REACTIONS (1)
  - DISSEMINATED TUBERCULOSIS [None]
